FAERS Safety Report 25277812 (Version 1)
Quarter: 2025Q2

REPORT INFORMATION
  Report Type: Spontaneous
  Country: US (occurrence: None)
  Receive Date: 20250507
  Receipt Date: 20250507
  Transmission Date: 20250716
  Serious: Yes (Hospitalization)
  Sender: FDA-CTU
  Company Number: None

PATIENT
  Age: 48 Year
  Sex: Female
  Weight: 77.3 kg

DRUGS (1)
  1. LUTETIUM OXODOTREOTIDE LU-177 [Suspect]
     Active Substance: LUTETIUM OXODOTREOTIDE LU-177

REACTIONS (7)
  - Colitis [None]
  - Pneumatosis intestinalis [None]
  - White blood cells urine positive [None]
  - Red blood cells urine positive [None]
  - Blood alkaline phosphatase increased [None]
  - Lipase increased [None]
  - Flank pain [None]

NARRATIVE: CASE EVENT DATE: 20250425
